FAERS Safety Report 6139992-1 (Version None)
Quarter: 2009Q2

REPORT INFORMATION
  Report Type: 
  Country: None (occurrence: None)
  Receive Date: 20090401
  Receipt Date: 20090320
  Transmission Date: 20091009
  Serious: Yes (Other)
  Sender: FDA-Public Use
  Company Number: US-PFIZER INC-2009186873

PATIENT
  Sex: Male
  Weight: 93.424 kg

DRUGS (5)
  1. NEURONTIN [Suspect]
     Indication: NEUROPATHY PERIPHERAL
     Dosage: 1200 MG, 2X/DAY
     Dates: start: 20080601
  2. ATENOLOL [Concomitant]
     Dosage: UNK
  3. GLUCOSAMINE [Concomitant]
     Dosage: UNK
  4. ASPIRIN [Concomitant]
     Dosage: UNK
  5. SAW PALMETTO [Concomitant]
     Dosage: UNK

REACTIONS (2)
  - NEPHROLITHIASIS [None]
  - TOOTH FRACTURE [None]
